FAERS Safety Report 15823256 (Version 2)
Quarter: 2019Q2

REPORT INFORMATION
  Report Type: Spontaneous
  Country: US (occurrence: US)
  Receive Date: 20190114
  Receipt Date: 20190429
  Transmission Date: 20190711
  Serious: Yes (Other)
  Sender: FDA-Public Use
  Company Number: US-JAZZ-2019-US-000239

PATIENT
  Age: 9 Year
  Sex: Male

DRUGS (6)
  1. ERWINAZE [Suspect]
     Active Substance: ASPARAGINASE ERWINIA CHRYSANTHEMI
     Dosage: 25000 U, THIRD CYCLE
     Route: 030
     Dates: start: 20181205, end: 201812
  2. VINCRISTINE [Concomitant]
     Active Substance: VINCRISTINE
     Indication: PRECURSOR T-LYMPHOBLASTIC LYMPHOMA/LEUKAEMIA
     Dosage: 1.6 MG, ONCE
     Route: 042
     Dates: start: 20181122, end: 20181122
  3. ERWINAZE [Suspect]
     Active Substance: ASPARAGINASE ERWINIA CHRYSANTHEMI
     Dosage: 25000 U, SECOND CYCLE
     Route: 030
     Dates: start: 2018, end: 201811
  4. ERWINAZE [Suspect]
     Active Substance: ASPARAGINASE ERWINIA CHRYSANTHEMI
     Indication: PRECURSOR T-LYMPHOBLASTIC LYMPHOMA/LEUKAEMIA
     Dosage: 25000 U, FIRST CYCLE, ONCE
     Route: 042
     Dates: start: 201806, end: 2018
  5. ERWINAZE [Suspect]
     Active Substance: ASPARAGINASE ERWINIA CHRYSANTHEMI
     Dosage: 27500 IU, ONCE
     Route: 042
     Dates: start: 20181217, end: 20181217
  6. DOXORUBICIN [Concomitant]
     Active Substance: DOXORUBICIN
     Indication: PRECURSOR T-LYMPHOBLASTIC LYMPHOMA/LEUKAEMIA
     Dosage: 26 MG, ONCE
     Route: 042
     Dates: start: 20181122, end: 20181122

REACTIONS (2)
  - Urticaria [Recovered/Resolved]
  - Rash maculo-papular [Unknown]

NARRATIVE: CASE EVENT DATE: 20181217
